FAERS Safety Report 9285910 (Version 1)
Quarter: 2013Q2

REPORT INFORMATION
  Report Type: Spontaneous
  Country: US (occurrence: None)
  Receive Date: 20130510
  Receipt Date: 20130510
  Transmission Date: 20140414
  Serious: Yes (Disabling, Other)
  Sender: FDA-Public Use
  Company Number: None

PATIENT
  Age: 28 Year
  Sex: Male
  Weight: 190 kg

DRUGS (1)
  1. CIPRO [Suspect]
     Indication: URINARY TRACT INFECTION
     Dosage: 1 TAB
     Route: 048
     Dates: start: 20130418, end: 20130425

REACTIONS (7)
  - Eye pain [None]
  - Vision blurred [None]
  - Headache [None]
  - Psychotic disorder [None]
  - Anxiety [None]
  - Panic attack [None]
  - Feeling abnormal [None]
